FAERS Safety Report 17203829 (Version 1)
Quarter: 2019Q4

REPORT INFORMATION
  Report Type: Spontaneous
  Country: SE (occurrence: SE)
  Receive Date: 20191226
  Receipt Date: 20191226
  Transmission Date: 20200122
  Serious: Yes (Hospitalization)
  Sender: FDA-Public Use
  Company Number: SE-MYLANLABS-2019M1127280

PATIENT
  Sex: Female

DRUGS (4)
  1. ANAFRANIL [Concomitant]
     Active Substance: CLOMIPRAMINE HYDROCHLORIDE
  2. TRUXAL                             /00012101/ [Concomitant]
     Active Substance: CHLORPROTHIXENE
  3. LERGIGAN (PROMETHAZINE) [Suspect]
     Active Substance: PROMETHAZINE HYDROCHLORIDE
     Indication: PRODUCT USED FOR UNKNOWN INDICATION
     Dosage: UNK
     Route: 048
  4. IMOVANE [Concomitant]
     Active Substance: ZOPICLONE

REACTIONS (4)
  - Abdominal pain [Unknown]
  - Intentional overdose [Unknown]
  - Intentional self-injury [Unknown]
  - Muscle twitching [Unknown]

NARRATIVE: CASE EVENT DATE: 201905
